FAERS Safety Report 10419870 (Version 1)
Quarter: 2014Q3

REPORT INFORMATION
  Report Type: Spontaneous
  Country: US (occurrence: None)
  Receive Date: 20140828
  Receipt Date: 20140828
  Transmission Date: 20150326
  Serious: Yes (Other)
  Sender: FDA-Public Use
  Company Number: FK201403404

PATIENT
  Age: 68 Year
  Sex: Male

DRUGS (3)
  1. ETOPOSIDE (MANUFACTURER UNKNOWN ) (ETOPOSIDE) [Suspect]
     Active Substance: ETOPOSIDE
     Indication: SMALL CELL LUNG CANCER
  2. CARBOPLATIN (MANUFACTURER UNKNOWN) (CARBOPLATIN) (CARBOPLATIN) [Suspect]
     Active Substance: CARBOPLATIN
     Indication: SMALL CELL LUNG CANCER
  3. ROMIPLOSTIM (ROMIPLOSTIM) (ROMIPLOSTIM) [Suspect]
     Active Substance: ROMIPLOSTIM
     Indication: THROMBOCYTOPENIA

REACTIONS (1)
  - Deep vein thrombosis [None]
